FAERS Safety Report 9694789 (Version 1)
Quarter: 2013Q4

REPORT INFORMATION
  Report Type: Spontaneous
  Country: US (occurrence: US)
  Receive Date: 20131119
  Receipt Date: 20131119
  Transmission Date: 20140711
  Serious: No
  Sender: FDA-Public Use
  Company Number: US-US-EMD SERONO, INC.-7249265

PATIENT
  Sex: Female

DRUGS (2)
  1. REBIF [Suspect]
     Indication: PRODUCT USED FOR UNKNOWN INDICATION
     Route: 058
     Dates: start: 20130805
  2. REBIF [Suspect]
     Route: 058
     Dates: end: 201309

REACTIONS (5)
  - Tremor [Recovering/Resolving]
  - Hypokinesia [Recovering/Resolving]
  - Feeling cold [Recovering/Resolving]
  - Depression [Unknown]
  - Influenza like illness [Unknown]
